FAERS Safety Report 17074933 (Version 1)
Quarter: 2019Q4

REPORT INFORMATION
  Report Type: Spontaneous
  Country: US (occurrence: US)
  Receive Date: 20191126
  Receipt Date: 20191126
  Transmission Date: 20200122
  Serious: Yes (Other)
  Sender: FDA-Public Use
  Company Number: US-AKORN PHARMACEUTICALS-2019AKN02411

PATIENT
  Sex: Female

DRUGS (2)
  1. MYORISAN [Suspect]
     Active Substance: ISOTRETINOIN
     Dosage: UNK
     Dates: start: 20190906, end: 2019
  2. MYORISAN [Suspect]
     Active Substance: ISOTRETINOIN
     Dosage: UNK
     Dates: start: 20190806, end: 2019

REACTIONS (7)
  - Ocular hyperaemia [Unknown]
  - Depression [Unknown]
  - Chest pain [Unknown]
  - Blood cholesterol increased [Unknown]
  - Back pain [Unknown]
  - Haematochezia [Unknown]
  - Dry skin [Unknown]

NARRATIVE: CASE EVENT DATE: 2019
